FAERS Safety Report 17069408 (Version 1)
Quarter: 2019Q4

REPORT INFORMATION
  Report Type: Spontaneous
  Country: IT (occurrence: IT)
  Receive Date: 20191125
  Receipt Date: 20191125
  Transmission Date: 20200122
  Serious: Yes (Other)
  Sender: FDA-Public Use
  Company Number: IT-TEVA-2019-IT-1140675

PATIENT
  Age: 76 Year
  Sex: Male

DRUGS (10)
  1. PANTORC [Concomitant]
     Active Substance: PANTOPRAZOLE SODIUM
  2. DIBASE [Concomitant]
     Active Substance: CHOLECALCIFEROL
  3. METFORMIN [Concomitant]
     Active Substance: METFORMIN HYDROCHLORIDE
  4. METHOTREXATE. [Suspect]
     Active Substance: METHOTREXATE
     Indication: RHEUMATOID ARTHRITIS
     Dosage: 15 MG
     Route: 030
     Dates: start: 20140501
  5. ORENCIA [Suspect]
     Active Substance: ABATACEPT
     Indication: RHEUMATOID ARTHRITIS
     Dosage: 125 MG
     Route: 058
     Dates: start: 20160607
  6. LOSARTAN. [Concomitant]
     Active Substance: LOSARTAN
  7. FOLINA [Concomitant]
  8. OLPREZIDE [Concomitant]
     Active Substance: HYDROCHLOROTHIAZIDE\OLMESARTAN MEDOXOMIL
  9. NORMIX [Concomitant]
     Active Substance: RIFAXIMIN
  10. TIKLID [Concomitant]
     Active Substance: TICLOPIDINE HYDROCHLORIDE

REACTIONS (1)
  - External ear neoplasm malignant [Recovered/Resolved with Sequelae]

NARRATIVE: CASE EVENT DATE: 20191017
